FAERS Safety Report 19284714 (Version 1)
Quarter: 2021Q2

REPORT INFORMATION
  Report Type: Spontaneous
  Country: US (occurrence: US)
  Receive Date: 20210521
  Receipt Date: 20210521
  Transmission Date: 20210717
  Serious: Yes (Hospitalization)
  Sender: FDA-Public Use
  Company Number: None

PATIENT
  Age: 74 Year
  Sex: Female

DRUGS (20)
  1. ATORVASTATIN [Concomitant]
     Active Substance: ATORVASTATIN
  2. FAMOTIDINE. [Concomitant]
     Active Substance: FAMOTIDINE
  3. PROLENSA [Concomitant]
     Active Substance: BROMFENAC SODIUM
  4. SOD CHL 3% NEPHRON [Concomitant]
  5. TRELEGY ELLIPTA [Concomitant]
     Active Substance: FLUTICASONE FUROATE\UMECLIDINIUM BROMIDE\VILANTEROL TRIFENATATE
  6. GABAPENTIN. [Concomitant]
     Active Substance: GABAPENTIN
  7. METOPROL SUC ER [Concomitant]
     Active Substance: METOPROLOL SUCCINATE
  8. TRAZODONE [Concomitant]
     Active Substance: TRAZODONE HYDROCHLORIDE
  9. LOTEMAX [Concomitant]
     Active Substance: LOTEPREDNOL ETABONATE
  10. PANTOPRAZOLE [Concomitant]
     Active Substance: PANTOPRAZOLE
  11. VERAPAMIL [Concomitant]
     Active Substance: VERAPAMIL HYDROCHLORIDE
  12. XIIDRA [Concomitant]
     Active Substance: LIFITEGRAST
  13. ESCITALOPRAM [Concomitant]
     Active Substance: ESCITALOPRAM OXALATE
  14. MAGNESIUM?OX [Concomitant]
  15. TOBRAMYCIN 300MG/5ML GEQ TOBI [Suspect]
     Active Substance: TOBRAMYCIN
     Indication: BRONCHIECTASIS
     Dosage: ?          OTHER DOSE:1 VIAL;?
     Route: 055
     Dates: start: 20160308
  16. ASPIRIN. [Concomitant]
     Active Substance: ASPIRIN
  17. LOTEPREDNOL [Concomitant]
     Active Substance: LOTEPREDNOL
  18. CIPROFLOXACN [Concomitant]
     Active Substance: CIPROFLOXACIN
  19. PREDNISONE. [Concomitant]
     Active Substance: PREDNISONE
  20. DUREZOL [Concomitant]
     Active Substance: DIFLUPREDNATE

REACTIONS (1)
  - Cerebrovascular accident [None]

NARRATIVE: CASE EVENT DATE: 20210501
